FAERS Safety Report 7401940-1 (Version None)
Quarter: 2011Q2

REPORT INFORMATION
  Report Type: 
  Country: None (occurrence: None)
  Receive Date: 20110408
  Receipt Date: 20110405
  Transmission Date: 20111010
  Serious: Yes (Hospitalization)
  Sender: FDA-Public Use
  Company Number: CH-PFIZER INC-CH-WYE-G05671810

PATIENT
  Age: 50 Year
  Sex: Male

DRUGS (11)
  1. NOVALGIN [Interacting]
     Dosage: 2.0 G, 2X/DAY
     Route: 041
     Dates: start: 20100204, end: 20100204
  2. TAZOBAC [Suspect]
     Indication: ANTIBIOTIC PROPHYLAXIS
     Dosage: 4.5 G, 3X/DAY
     Route: 041
     Dates: start: 20100131, end: 20100205
  3. TAMIFLU [Concomitant]
     Indication: INFLUENZA
     Dosage: 75 MG, 2X/DAY
     Dates: start: 20100204, end: 20100205
  4. CIPROXIN [Concomitant]
     Dosage: 750 MG, 1X/DAY
     Dates: start: 20100205, end: 20100208
  5. OBRACIN [Interacting]
     Indication: ANTIBIOTIC PROPHYLAXIS
     Dosage: 80.0 MG, 4X/DAY
     Route: 041
     Dates: start: 20100121, end: 20100101
  6. OBRACIN [Interacting]
     Dosage: 150.0 MG, 4X/DAY
     Route: 041
     Dates: start: 20100101, end: 20100205
  7. NOVALGIN [Interacting]
     Indication: PYREXIA
     Dosage: 1.0 G, 1X/DAY
     Route: 041
     Dates: start: 20100129, end: 20100129
  8. NOVALGIN [Interacting]
     Dosage: 1.0 G, 1X/DAY
     Route: 041
     Dates: start: 20100205, end: 20100205
  9. PARACETAMOL [Concomitant]
     Dosage: 1 G, 4X/DAY
     Dates: start: 20100101
  10. TAZOBAC [Interacting]
     Indication: PYREXIA
  11. FRAGMIN [Concomitant]
     Route: 058

REACTIONS (2)
  - GRANULOCYTOPENIA [None]
  - DRUG INTERACTION [None]
